FAERS Safety Report 7409399-5 (Version None)
Quarter: 2011Q2

REPORT INFORMATION
  Report Type: 
  Country: None (occurrence: None)
  Receive Date: 20110412
  Receipt Date: 20101229
  Transmission Date: 20111010
  Serious: Yes (Hospitalization)
  Sender: FDA-Public Use
  Company Number: US-BAYER-201019675NA

PATIENT
  Age: 22 Year
  Sex: Female
  Weight: 103 kg

DRUGS (3)
  1. PHENERGAN EXPECTORANT W/ CODEINE [Concomitant]
     Indication: PNEUMONIA
     Dates: start: 20080301
  2. YAZ [Suspect]
     Indication: MENSTRUAL DISORDER
     Route: 048
     Dates: start: 20070701, end: 20080315
  3. ADVIL LIQUI-GELS [Concomitant]

REACTIONS (8)
  - DYSPNOEA [None]
  - PULMONARY EMBOLISM [None]
  - CHEST PAIN [None]
  - THROMBOSIS [None]
  - COUGH [None]
  - PAIN [None]
  - DEEP VEIN THROMBOSIS [None]
  - PAIN IN EXTREMITY [None]
